FAERS Safety Report 4985489-1 (Version None)
Quarter: 2006Q2

REPORT INFORMATION
  Report Type: 
  Country: None (occurrence: None)
  Receive Date: 20060428
  Receipt Date: 20050504
  Transmission Date: 20061013
  Serious: No
  Sender: FDA-Public Use
  Company Number: US-GLAXOSMITHKLINE-A0557316A

PATIENT
  Age: 73 Year
  Sex: Female

DRUGS (4)
  1. FLOVENT [Suspect]
     Indication: CHRONIC OBSTRUCTIVE PULMONARY DISEASE
     Dosage: 2PUFF TWICE PER DAY
     Route: 055
     Dates: start: 20050315
  2. SPIRIVA [Concomitant]
  3. SINGULAIR [Concomitant]
  4. BLOOD PRESSURE MEDICATION [Concomitant]

REACTIONS (1)
  - CHEST PAIN [None]
